FAERS Safety Report 4915004-X (Version None)
Quarter: 2006Q1

REPORT INFORMATION
  Report Type: 
  Country: None (occurrence: None)
  Receive Date: 20060217
  Receipt Date: 20060207
  Transmission Date: 20060701
  Serious: Yes (Hospitalization)
  Sender: FDA-Public Use
  Company Number: FR-AVENTIS-200610490FR

PATIENT
  Age: 46 Year
  Sex: Female
  Weight: 74 kg

DRUGS (5)
  1. ARAVA [Suspect]
     Indication: RHEUMATOID ARTHRITIS
     Route: 048
     Dates: start: 20031001, end: 20051123
  2. CORTANCYL [Concomitant]
  3. FOSAMAX [Concomitant]
  4. NAPROSYN [Concomitant]
  5. OMEPRAZOLE [Concomitant]

REACTIONS (3)
  - ALANINE AMINOTRANSFERASE INCREASED [None]
  - ASPARTATE AMINOTRANSFERASE INCREASED [None]
  - HEPATOCELLULAR DAMAGE [None]
